FAERS Safety Report 8830155 (Version 1)
Quarter: 2012Q4

REPORT INFORMATION
  Report Type: 
  Country: ES (occurrence: ES)
  Receive Date: 20121008
  Receipt Date: 20121008
  Transmission Date: 20130627
  Serious: Yes (Hospitalization)
  Sender: FDA-Public Use
  Company Number: ES-SANOFI-AVENTIS-2012SA073136

PATIENT
  Age: 76 Year
  Sex: Female

DRUGS (1)
  1. SEGURIL [Suspect]
     Indication: HYPERTENSION
     Dosage: drug-SEGURIL 40 MG COMPRIMIDOS , 10 COMPRIMIDOS
     Route: 048
     Dates: start: 20101106, end: 20120608

REACTIONS (2)
  - Hyponatraemia [Recovered/Resolved]
  - Fall [Unknown]
